FAERS Safety Report 5726365-6 (Version None)
Quarter: 2008Q2

REPORT INFORMATION
  Report Type: 
  Country: None (occurrence: None)
  Receive Date: 20080502
  Receipt Date: 20080425
  Transmission Date: 20081010
  Serious: Yes (Death)
  Sender: FDA-Public Use
  Company Number: GB-GILEAD-2008-0015307

PATIENT
  Sex: Male

DRUGS (4)
  1. ATRIPLA [Suspect]
     Dosage: (EFAVIRENZ 66MG/EMTRICITABINE 200MG/TENOFOVIR DF 245MG)
     Route: 048
     Dates: start: 20080107
  2. VIREAD [Suspect]
     Dosage: NI
     Route: 048
     Dates: start: 20071114, end: 20080101
  3. EMTRIVA [Suspect]
     Dosage: NI
     Route: 048
     Dates: start: 20071114, end: 20080101
  4. EFAVIRENZ [Suspect]
     Dosage: NI
     Route: 048
     Dates: start: 20071114, end: 20080101

REACTIONS (1)
  - HODGKIN'S DISEASE [None]
